FAERS Safety Report 19983663 (Version 2)
Quarter: 2021Q4

REPORT INFORMATION
  Report Type: Spontaneous
  Country: US (occurrence: US)
  Receive Date: 20211022
  Receipt Date: 20211124
  Transmission Date: 20220303
  Serious: No
  Sender: FDA-Public Use
  Company Number: US-JNJFOC-20211022402

PATIENT
  Age: 91 Year
  Sex: Male

DRUGS (3)
  1. TYLENOL [Suspect]
     Active Substance: ACETAMINOPHEN
     Indication: Pain
     Route: 065
  2. COVID-19 VACCINE [Concomitant]
     Indication: Product used for unknown indication
     Dosage: 1ST SHOT. LEFT DELTOID
     Route: 065
     Dates: start: 20210219
  3. COVID-19 VACCINE [Concomitant]
     Dosage: 2ND SHOT. LEFT DELTOID
     Route: 065
     Dates: start: 20210312

REACTIONS (1)
  - Drug ineffective [Unknown]
